FAERS Safety Report 10769914 (Version 2)
Quarter: 2015Q2

REPORT INFORMATION
  Report Type: Spontaneous
  Country: US (occurrence: US)
  Receive Date: 20150206
  Receipt Date: 20150629
  Transmission Date: 20150821
  Serious: Yes (Hospitalization)
  Sender: FDA-Public Use
  Company Number: US-BAYER-2015-015681

PATIENT
  Age: 26 Year
  Sex: Female

DRUGS (7)
  1. MIRENA [Suspect]
     Active Substance: LEVONORGESTREL
     Indication: CONTRACEPTION
     Dosage: 20 MCG/24HR, CONT
     Route: 015
     Dates: start: 200904, end: 20130123
  2. FLAGYL [Concomitant]
     Active Substance: METRONIDAZOLE\METRONIDAZOLE HYDROCHLORIDE
     Indication: FUNGAL INFECTION
  3. OXYCODONE [Concomitant]
     Active Substance: OXYCODONE
     Dosage: UNK
     Dates: start: 2000
  4. BACTRIM [AMMONIUM CHLORIDE,GUAIFENESIN,SULFAMETHOXAZOLE,TRIMETHOPR [Concomitant]
     Indication: URINARY TRACT INFECTION
     Dosage: UNK
     Dates: start: 2000
  5. TORADOL [Concomitant]
     Active Substance: KETOROLAC TROMETHAMINE
     Indication: PAIN
     Route: 042
  6. DOXYCYCLIN [DOXYCYCLINE] [Concomitant]
  7. ROCEPHIN [Concomitant]
     Active Substance: CEFTRIAXONE SODIUM
     Dosage: UNK
     Dates: start: 2000

REACTIONS (10)
  - Abdominal pain lower [None]
  - Device difficult to use [None]
  - Asthenia [None]
  - Infection [None]
  - Injury [None]
  - Hyperhidrosis [None]
  - Pelvic inflammatory disease [None]
  - Pelvic pain [None]
  - Blood glucose decreased [None]
  - Embedded device [None]

NARRATIVE: CASE EVENT DATE: 20130117
